FAERS Safety Report 14251963 (Version 2)
Quarter: 2018Q1

REPORT INFORMATION
  Report Type: Spontaneous
  Country: US (occurrence: US)
  Receive Date: 20171205
  Receipt Date: 20180119
  Transmission Date: 20180508
  Serious: No
  Sender: FDA-Public Use
  Company Number: US-GLAXOSMITHKLINE-US2017GSK185872

PATIENT
  Age: 71 Year
  Sex: Female
  Weight: 78.91 kg

DRUGS (2)
  1. ADVAIR DISKUS [Suspect]
     Active Substance: FLUTICASONE PROPIONATE\SALMETEROL XINAFOATE
     Indication: CHRONIC OBSTRUCTIVE PULMONARY DISEASE
     Dosage: UNK
     Dates: start: 2015
  2. ADVAIR DISKUS [Suspect]
     Active Substance: FLUTICASONE PROPIONATE\SALMETEROL XINAFOATE
     Indication: CHRONIC OBSTRUCTIVE PULMONARY DISEASE
     Dosage: UNK
     Route: 048
     Dates: start: 200906, end: 2009

REACTIONS (5)
  - Dyspnoea [Unknown]
  - Choking sensation [Recovered/Resolved]
  - Drug intolerance [Unknown]
  - Inability to afford medication [Unknown]
  - Drug dose omission [Unknown]

NARRATIVE: CASE EVENT DATE: 200906
